FAERS Safety Report 6238732-5 (Version None)
Quarter: 2009Q2

REPORT INFORMATION
  Report Type: 
  Country: None (occurrence: None)
  Receive Date: 20090617
  Receipt Date: 20090602
  Transmission Date: 20091009
  Serious: Yes (Hospitalization)
  Sender: FDA-Public Use
  Company Number: WAES 0901USA01840

PATIENT
  Age: 77 Year
  Sex: Female

DRUGS (2)
  1. FOSAMAX [Suspect]
     Indication: OSTEOPOROSIS
     Dosage: 35 MG/WKY PO
     Route: 048
     Dates: start: 20070411, end: 20070818
  2. OLMETEC [Concomitant]

REACTIONS (1)
  - RENAL FAILURE [None]
